FAERS Safety Report 20840760 (Version 1)
Quarter: 2022Q2

REPORT INFORMATION
  Report Type: Spontaneous
  Country: US (occurrence: None)
  Receive Date: 20220517
  Receipt Date: 20220517
  Transmission Date: 20220721
  Serious: No
  Sender: FDA-Public Use
  Company Number: None

PATIENT
  Age: 72 Year
  Sex: Male
  Weight: 92.25 kg

DRUGS (13)
  1. EVUSHELD [Suspect]
     Active Substance: CILGAVIMAB\TIXAGEVIMAB
     Indication: COVID-19 prophylaxis
     Dosage: OTHER FREQUENCY : ONE TIME;?OTHER ROUTE : INJECTIONS INTO HIPS;?
     Route: 050
     Dates: start: 20220328, end: 20220328
  2. ALLOPURINOL [Concomitant]
     Active Substance: ALLOPURINOL
  3. ATORVASTATIN [Concomitant]
     Active Substance: ATORVASTATIN
  4. LABETALOL [Concomitant]
     Active Substance: LABETALOL\LABETALOL HYDROCHLORIDE
  5. BENZOYL PEROXIDE [Concomitant]
  6. CLINDAMYCIN [Concomitant]
     Active Substance: CLINDAMYCIN
  7. trimcinolone [Concomitant]
  8. IBRUTINIB [Concomitant]
     Active Substance: IBRUTINIB
  9. hydrochlorothazide [Concomitant]
  10. TAMSULOSIN [Concomitant]
     Active Substance: TAMSULOSIN
  11. ASPIRIN [Concomitant]
     Active Substance: ASPIRIN
  12. VITAMIN B12 [Concomitant]
     Active Substance: CYANOCOBALAMIN
  13. MULTI-VITAMIN [Concomitant]
     Active Substance: .ALPHA.-TOCOPHEROL ACETATE, DL-\ASCORBIC ACID\CYANOCOBALAMIN\FLUORIDE ION\FOLIC ACID\NIACIN\PYRIDOXI

REACTIONS (4)
  - Rash [None]
  - Rash [None]
  - Eczema [None]
  - Drug hypersensitivity [None]

NARRATIVE: CASE EVENT DATE: 20220402
